FAERS Safety Report 15855671 (Version 9)
Quarter: 2019Q4

REPORT INFORMATION
  Report Type: Spontaneous
  Country: US (occurrence: US)
  Receive Date: 20190122
  Receipt Date: 20191206
  Transmission Date: 20200122
  Serious: Yes (Hospitalization)
  Sender: FDA-Public Use
  Company Number: US-ACTELION-A-NJ2019-185193

PATIENT
  Age: 58 Year
  Sex: Female
  Weight: 59.86 kg

DRUGS (8)
  1. VELETRI [Suspect]
     Active Substance: EPOPROSTENOL
     Indication: PULMONARY HYPERTENSION
     Dosage: 30 NG/KG, PER MIN
     Route: 042
  2. TRACLEER [Concomitant]
     Active Substance: BOSENTAN
     Indication: PRODUCT USED FOR UNKNOWN INDICATION
     Route: 048
  3. FLOLAN [Concomitant]
     Active Substance: EPOPROSTENOL SODIUM
  4. ELIQUIS [Concomitant]
     Active Substance: APIXABAN
  5. VELETRI [Suspect]
     Active Substance: EPOPROSTENOL
     Dosage: 60 NG/KG, PER MIN
     Route: 042
  6. ADCIRCA [Concomitant]
     Active Substance: TADALAFIL
  7. LETAIRIS [Concomitant]
     Active Substance: AMBRISENTAN
  8. AMLODIPINE [Concomitant]
     Active Substance: AMLODIPINE BESYLATE

REACTIONS (6)
  - Hospitalisation [Unknown]
  - Device issue [Unknown]
  - Catheter management [Unknown]
  - Dyspnoea [Unknown]
  - Haemoglobin decreased [Unknown]
  - Gastrointestinal haemorrhage [Unknown]

NARRATIVE: CASE EVENT DATE: 20190315
